FAERS Safety Report 11680037 (Version 3)
Quarter: 2015Q4

REPORT INFORMATION
  Report Type: Spontaneous
  Country: US (occurrence: US)
  Receive Date: 20151027
  Receipt Date: 20151110
  Transmission Date: 20160304
  Serious: No
  Sender: FDA-Public Use
  Company Number: US-ELI_LILLY_AND_COMPANY-US200912001296

PATIENT
  Age: 58 Year
  Sex: Female

DRUGS (1)
  1. FORTEO [Suspect]
     Active Substance: TERIPARATIDE
     Indication: OSTEOPOROSIS
     Dosage: UNK, UNKNOWN
     Route: 065

REACTIONS (9)
  - Chest pain [Recovered/Resolved]
  - Joint injury [Unknown]
  - Fibula fracture [Unknown]
  - Vitamin D decreased [Unknown]
  - Drug dose omission [Unknown]
  - Ligament sprain [Unknown]
  - Fall [Recovered/Resolved]
  - Foot fracture [Unknown]
  - Headache [Recovered/Resolved]

NARRATIVE: CASE EVENT DATE: 201008
